FAERS Safety Report 14604098 (Version 1)
Quarter: 2018Q1

REPORT INFORMATION
  Report Type: Spontaneous
  Country: DE (occurrence: DE)
  Receive Date: 20180306
  Receipt Date: 20180306
  Transmission Date: 20180509
  Serious: Yes (Congenital Anomaly, Other)
  Sender: FDA-Public Use
  Company Number: DE-ALLERGAN-1811817US

PATIENT
  Age: 1 Day
  Sex: Male

DRUGS (3)
  1. CITALOPRAM HYDROBROMIDE - BP [Suspect]
     Active Substance: CITALOPRAM HYDROBROMIDE
     Indication: EXPOSURE DURING PREGNANCY
     Dosage: 40 MG, QD
     Route: 064
     Dates: start: 20160706, end: 20170405
  2. QUETIAPINE. [Suspect]
     Active Substance: QUETIAPINE
     Indication: EXPOSURE DURING PREGNANCY
     Dosage: 25 MG, QD
     Route: 064
     Dates: start: 20160706, end: 20170405
  3. FEMIBION [Concomitant]
     Active Substance: VITAMINS
     Indication: EXPOSURE DURING PREGNANCY
     Route: 064
     Dates: start: 20160706, end: 20170405

REACTIONS (3)
  - Hypospadias [Not Recovered/Not Resolved]
  - Small for dates baby [Recovered/Resolved]
  - Foetal exposure during pregnancy [Unknown]

NARRATIVE: CASE EVENT DATE: 20170405
